FAERS Safety Report 17123739 (Version 1)
Quarter: 2019Q4

REPORT INFORMATION
  Report Type: Spontaneous
  Country: US (occurrence: US)
  Receive Date: 20191206
  Receipt Date: 20191206
  Transmission Date: 20200122
  Serious: No
  Sender: FDA-Public Use
  Company Number: US-ASTRAZENECA-2019SF60114

PATIENT
  Age: 844 Month
  Sex: Male
  Weight: 83.9 kg

DRUGS (3)
  1. METFORMIN [Concomitant]
     Active Substance: METFORMIN HYDROCHLORIDE
     Indication: TYPE 2 DIABETES MELLITUS
     Route: 048
  2. BYDUREON [Suspect]
     Active Substance: EXENATIDE
     Indication: TYPE 2 DIABETES MELLITUS
     Dosage: SDT 2 MG ONCE A WEEK
     Route: 058
     Dates: start: 2017, end: 201805
  3. BYDUREON [Suspect]
     Active Substance: EXENATIDE
     Indication: TYPE 2 DIABETES MELLITUS
     Dosage: PEN 2 MG ONCE A WEEK
     Route: 058
     Dates: start: 201805

REACTIONS (3)
  - Wrong technique in device usage process [Unknown]
  - Spinal stenosis [Unknown]
  - Device issue [Unknown]

NARRATIVE: CASE EVENT DATE: 201811
